FAERS Safety Report 20543539 (Version 3)
Quarter: 2022Q2

REPORT INFORMATION
  Report Type: Spontaneous
  Country: US (occurrence: US)
  Receive Date: 20220302
  Receipt Date: 20220407
  Transmission Date: 20220721
  Serious: No
  Sender: FDA-Public Use
  Company Number: US-BRISTOL-MYERS SQUIBB COMPANY-BMS-2022-031615

PATIENT
  Age: 78 Year
  Sex: Female

DRUGS (1)
  1. ORENCIA [Suspect]
     Active Substance: ABATACEPT
     Indication: Rheumatoid arthritis
     Dosage: 125MG/ML CLICKJECT QWK
     Route: 058
     Dates: start: 20190101

REACTIONS (3)
  - Asthma [Not Recovered/Not Resolved]
  - Pain [Unknown]
  - Skin mass [Unknown]

NARRATIVE: CASE EVENT DATE: 20220323
